FAERS Safety Report 5618703-X (Version None)
Quarter: 2008Q1

REPORT INFORMATION
  Report Type: 
  Country: None (occurrence: None)
  Receive Date: 20080205
  Receipt Date: 20080205
  Transmission Date: 20080703
  Serious: Yes (Hospitalization)
  Sender: FDA-Public Use
  Company Number: None

PATIENT
  Sex: Male

DRUGS (2)
  1. GEODON [Suspect]
     Indication: SCHIZOPHRENIA
     Dosage: 80MG  BID  PO
     Route: 048
     Dates: start: 20060601, end: 20060606
  2. RISPERDAL [Suspect]
     Indication: SCHIZOPHRENIA
     Dosage: 2MG  QHS  PO
     Route: 048
     Dates: start: 20060301, end: 20060601

REACTIONS (12)
  - AGGRESSION [None]
  - AGITATION [None]
  - BLINDNESS [None]
  - BODY TEMPERATURE INCREASED [None]
  - DEHYDRATION [None]
  - DISORIENTATION [None]
  - DRUG ABUSE [None]
  - DRUG TOXICITY [None]
  - HEART RATE INCREASED [None]
  - NEUROLEPTIC MALIGNANT SYNDROME [None]
  - RENAL FAILURE ACUTE [None]
  - RHABDOMYOLYSIS [None]
